FAERS Safety Report 15280690 (Version 1)
Quarter: 2018Q3

REPORT INFORMATION
  Report Type: Spontaneous
  Country: US (occurrence: US)
  Receive Date: 20180731
  Receipt Date: 20180731
  Transmission Date: 20181010
  Serious: Yes (Other)
  Sender: FDA-Public Use
  Company Number: None

PATIENT
  Age: 58 Year
  Sex: Female
  Weight: 81 kg

DRUGS (2)
  1. LEVITIRACETAM [Suspect]
     Active Substance: LEVETIRACETAM
     Indication: MIGRAINE
     Dosage: ?          QUANTITY:1 TABLET(S);?
     Route: 048
     Dates: start: 20180715, end: 20180731
  2. LEVITIRACETAM [Suspect]
     Active Substance: LEVETIRACETAM
     Indication: SEIZURE
     Dosage: ?          QUANTITY:1 TABLET(S);?
     Route: 048
     Dates: start: 20180715, end: 20180731

REACTIONS (6)
  - Impaired driving ability [None]
  - Vertigo [None]
  - Dizziness [None]
  - Confusional state [None]
  - Gait disturbance [None]
  - Product substitution issue [None]

NARRATIVE: CASE EVENT DATE: 20180715
